FAERS Safety Report 20132033 (Version 1)
Quarter: 2021Q4

REPORT INFORMATION
  Report Type: Spontaneous
  Country: US (occurrence: US)
  Receive Date: 20211130
  Receipt Date: 20211130
  Transmission Date: 20220303
  Serious: No
  Sender: FDA-Public Use
  Company Number: US-MYLANLABS-2021M1063223

PATIENT
  Sex: Male

DRUGS (1)
  1. PROCTOFOAM HC [Suspect]
     Active Substance: HYDROCORTISONE ACETATE\PRAMOXINE HYDROCHLORIDE
     Indication: Anal fissure
     Dosage: 1/1 PERCENT, TID, 3 TIMES A DAY FOR 7 DAYS
     Route: 061
     Dates: start: 20210913

REACTIONS (2)
  - Product quality issue [Unknown]
  - Device difficult to use [Unknown]
